FAERS Safety Report 13260649 (Version 1)
Quarter: 2017Q1

REPORT INFORMATION
  Report Type: Report from Study
  Country: CA (occurrence: CA)
  Receive Date: 20170222
  Receipt Date: 20170222
  Transmission Date: 20170428
  Serious: Yes (Other)
  Sender: FDA-Public Use
  Company Number: CA-JNJFOC-20170217781

PATIENT
  Age: 45 Year
  Sex: Female
  Weight: 86.4 kg

DRUGS (1)
  1. STELARA [Suspect]
     Active Substance: USTEKINUMAB
     Indication: PSORIASIS
     Route: 058
     Dates: start: 20150916

REACTIONS (5)
  - Nausea [Recovered/Resolved]
  - Headache [Recovered/Resolved]
  - Mastitis [Recovered/Resolved]
  - Abscess oral [Recovered/Resolved]
  - Injection related reaction [Unknown]

NARRATIVE: CASE EVENT DATE: 20170106
